FAERS Safety Report 12148111 (Version 1)
Quarter: 2016Q1

REPORT INFORMATION
  Report Type: Spontaneous
  Country: US (occurrence: US)
  Receive Date: 20160304
  Receipt Date: 20160304
  Transmission Date: 20160526
  Serious: No
  Sender: FDA-Public Use
  Company Number: US-CELGENEUS-USA-2016030450

PATIENT
  Sex: Female

DRUGS (2)
  1. OTEZLA [Suspect]
     Active Substance: APREMILAST
     Dosage: START PACK: 10MG, 20MG, 30MG
     Route: 048
  2. OTEZLA [Suspect]
     Active Substance: APREMILAST
     Indication: PSORIASIS
     Dosage: START PACK: 10MG, 20MG, 30MG
     Route: 048

REACTIONS (5)
  - Nausea [Unknown]
  - Mood swings [Unknown]
  - Headache [Unknown]
  - Diarrhoea [Unknown]
  - Feeding disorder [Unknown]
